FAERS Safety Report 5899456-7 (Version None)
Quarter: 2008Q3

REPORT INFORMATION
  Report Type: 
  Country: None (occurrence: None)
  Receive Date: 20080926
  Receipt Date: 20080916
  Transmission Date: 20090109
  Serious: Yes (Hospitalization)
  Sender: FDA-Public Use
  Company Number: US-RB-004215-08

PATIENT
  Age: 32 Year
  Sex: Female

DRUGS (1)
  1. CHILDREN'S DELSYM ORANGE [Suspect]
     Dosage: 1 TEASPOON TAKEN PER DOSE. TAKEN TWICE.
     Route: 048
     Dates: start: 20080901

REACTIONS (5)
  - CHEST DISCOMFORT [None]
  - CHILLS [None]
  - DIZZINESS [None]
  - MUSCULAR WEAKNESS [None]
  - SYNCOPE [None]
